FAERS Safety Report 4870144-9 (Version None)
Quarter: 2005Q4

REPORT INFORMATION
  Report Type: 
  Country: None (occurrence: None)
  Receive Date: 20051228
  Receipt Date: 20051219
  Transmission Date: 20060501
  Serious: Yes (Life-Threatening, Hospitalization)
  Sender: FDA-Public Use
  Company Number: MK200507-0212-3

PATIENT
  Age: 58 Year
  Sex: Female

DRUGS (1)
  1. OPTIRAY 320 [Suspect]
     Indication: COMPUTERISED TOMOGRAM
     Dosage: 100 ML, ONCE, IV
     Route: 042
     Dates: start: 20050721, end: 20050721

REACTIONS (6)
  - BLOOD PRESSURE INCREASED [None]
  - ELECTROCARDIOGRAM ST SEGMENT ELEVATION [None]
  - EYELID OEDEMA [None]
  - NASAL CONGESTION [None]
  - NAUSEA [None]
  - SHOCK [None]
